FAERS Safety Report 9316507 (Version 1)
Quarter: 2013Q2

REPORT INFORMATION
  Report Type: Spontaneous
  Country: US (occurrence: None)
  Receive Date: 20130524
  Receipt Date: 20130524
  Transmission Date: 20140414
  Serious: Yes (Other)
  Sender: FDA-Public Use
  Company Number: FK201301629

PATIENT
  Sex: 0

DRUGS (2)
  1. PROPRANOLOL HYDROCHLORIDE [Suspect]
     Indication: PHACES SYNDROME
     Dosage: 1 MG/KG, 1 MG/KG/DAY DIVIDED INTO 3 DOSES DAILY, ORAL
     Route: 048
  2. CORTICOSTEROIDS [Concomitant]

REACTIONS (1)
  - Hemiparesis [None]
